FAERS Safety Report 7166188-7 (Version None)
Quarter: 2010Q4

REPORT INFORMATION
  Report Type: 
  Country: None (occurrence: None)
  Receive Date: 20101202
  Receipt Date: 20101119
  Transmission Date: 20110411
  Serious: Yes (Other)
  Sender: FDA-Public Use
  Company Number: 201041934NA

PATIENT
  Age: 32 Year
  Sex: Female

DRUGS (2)
  1. MIRENA [Suspect]
     Indication: CONTRACEPTION
     Dosage: 20 ?G, TOTAL DAILY, INTRA-UTERINE
     Route: 015
     Dates: start: 20080101
  2. VENTOLIN [Concomitant]

REACTIONS (5)
  - CARDIOLIPIN ANTIBODY POSITIVE [None]
  - DISEASE RECURRENCE [None]
  - OVARIAN CYST [None]
  - SINUSITIS [None]
  - TENDERNESS [None]
